FAERS Safety Report 24233959 (Version 1)
Quarter: 2024Q3

REPORT INFORMATION
  Report Type: Spontaneous
  Country: FR (occurrence: None)
  Receive Date: 20240821
  Receipt Date: 20240821
  Transmission Date: 20241016
  Serious: Yes (Death, Other)
  Sender: ASTRAZENECA
  Company Number: 2024A189623

PATIENT
  Age: 38 Year
  Sex: Male
  Weight: 97 kg

DRUGS (6)
  1. QUETIAPINE [Suspect]
     Active Substance: QUETIAPINE
     Indication: Toxicity to various agents
     Dosage: 300 MG 1 TABLET AT BEDTIME
     Dates: start: 20240322, end: 20240322
  2. QUETIAPINE [Suspect]
     Active Substance: QUETIAPINE
     Indication: Poisoning
     Dosage: 300 MG 1 TABLET AT BEDTIME
     Dates: start: 20240322, end: 20240322
  3. OXAZEPAM [Suspect]
     Active Substance: OXAZEPAM
     Indication: Toxicity to various agents
     Dates: start: 20240322, end: 20240322
  4. OXAZEPAM [Suspect]
     Active Substance: OXAZEPAM
     Indication: Poisoning
     Dates: start: 20240322, end: 20240322
  5. VENLAFAXINE [Suspect]
     Active Substance: VENLAFAXINE HYDROCHLORIDE
     Route: 048
     Dates: start: 20240322, end: 20240322
  6. MELATONIN [Suspect]
     Active Substance: MELATONIN
     Dosage: 2 AT BEDTIME
     Dates: start: 20240322, end: 20240322

REACTIONS (1)
  - Toxicity to various agents [Fatal]

NARRATIVE: CASE EVENT DATE: 20240323
